FAERS Safety Report 14565322 (Version 1)
Quarter: 2018Q1

REPORT INFORMATION
  Report Type: Spontaneous
  Country: FR (occurrence: FR)
  Receive Date: 20180223
  Receipt Date: 20180223
  Transmission Date: 20180509
  Serious: Yes (Hospitalization)
  Sender: FDA-Public Use
  Company Number: FR-AUROBINDO-AUR-APL-2018-008762

PATIENT
  Age: 84 Year
  Sex: Male
  Weight: 72 kg

DRUGS (7)
  1. IMOVANE [Concomitant]
     Active Substance: ZOPICLONE
     Indication: PRODUCT USED FOR UNKNOWN INDICATION
     Dosage: ()
     Route: 048
  2. PREVISCAN                          /00261401/ [Interacting]
     Active Substance: PENTOXIFYLLINE
     Indication: ATRIAL FIBRILLATION
     Dosage: 1/2 CP EN ALTERNANCE AVEC 1/4 CP/JOUR ()
     Route: 048
     Dates: end: 20171229
  3. TEMERIT [Concomitant]
     Active Substance: NEBIVOLOL
     Indication: PRODUCT USED FOR UNKNOWN INDICATION
     Route: 048
  4. XANAX [Concomitant]
     Active Substance: ALPRAZOLAM
     Indication: PRODUCT USED FOR UNKNOWN INDICATION
     Dosage: ()
     Route: 048
  5. CEFUROXIME. [Suspect]
     Active Substance: CEFUROXIME
     Indication: BRONCHIOLITIS
     Route: 048
     Dates: start: 20171219, end: 20171229
  6. NITRENDIPINE [Concomitant]
     Active Substance: NITRENDIPINE
     Indication: PRODUCT USED FOR UNKNOWN INDICATION
     Dosage: ()
     Route: 048
  7. TERCIAN                            /00759301/ [Concomitant]
     Active Substance: CYAMEMAZINE
     Indication: PRODUCT USED FOR UNKNOWN INDICATION
     Route: 048

REACTIONS (3)
  - Drug interaction [Recovered/Resolved]
  - Anaemia [Recovering/Resolving]
  - Muscle haemorrhage [Recovered/Resolved]

NARRATIVE: CASE EVENT DATE: 20171229
